FAERS Safety Report 20750512 (Version 2)
Quarter: 2022Q2

REPORT INFORMATION
  Report Type: Report from Study
  Country: NO (occurrence: None)
  Receive Date: 20220426
  Receipt Date: 20220428
  Transmission Date: 20220721
  Serious: Yes (Hospitalization)
  Sender: FDA-Public Use
  Company Number: NO-Eisai Medical Research-EC-2022-111647

PATIENT
  Age: 73 Year
  Sex: Female
  Weight: 71.8 kg

DRUGS (6)
  1. LENVATINIB [Suspect]
     Active Substance: LENVATINIB
     Indication: Clear cell renal cell carcinoma
     Route: 048
     Dates: start: 20220317, end: 20220330
  2. LENVATINIB [Suspect]
     Active Substance: LENVATINIB
     Route: 048
     Dates: start: 20220408, end: 20220418
  3. PEMBROLIZUMAB [Suspect]
     Active Substance: PEMBROLIZUMAB
     Indication: Clear cell renal cell carcinoma
     Route: 041
     Dates: start: 20220317, end: 20220317
  4. BELZUTIFAN [Suspect]
     Active Substance: BELZUTIFAN
     Indication: Clear cell renal cell carcinoma
     Route: 048
     Dates: start: 20220317, end: 20220323
  5. BELZUTIFAN [Suspect]
     Active Substance: BELZUTIFAN
     Route: 048
     Dates: start: 20220408, end: 20220418
  6. DALTEPARIN SODIUM [Concomitant]
     Active Substance: DALTEPARIN SODIUM
     Route: 058
     Dates: start: 202202, end: 20220322

REACTIONS (4)
  - Hypoxia [Recovering/Resolving]
  - Confusional state [Recovering/Resolving]
  - Renal haemorrhage [Recovering/Resolving]
  - Anaemia [Recovering/Resolving]

NARRATIVE: CASE EVENT DATE: 20220322
